FAERS Safety Report 5833682-8 (Version None)
Quarter: 2008Q3

REPORT INFORMATION
  Report Type: 
  Country: None (occurrence: None)
  Receive Date: 20080801
  Receipt Date: 20080721
  Transmission Date: 20090109
  Serious: No
  Sender: FDA-Public Use
  Company Number: OPER20080136

PATIENT
  Age: 58 Year
  Sex: Female
  Weight: 102.5129 kg

DRUGS (12)
  1. OPANA ER [Suspect]
     Indication: PAIN
     Dosage: 10 MG, BID, PER ORAL
     Route: 048
     Dates: start: 20080515, end: 20080523
  2. ZOCOR [Concomitant]
  3. PLAVIX [Concomitant]
  4. LANTUS [Concomitant]
  5. NOVOLOG [Concomitant]
  6. METFORMIN HCL [Concomitant]
  7. CYMBALTA [Concomitant]
  8. ARAVA [Concomitant]
  9. LISINOPRIL AND HYDROCHLOROTHIAZIDE [Concomitant]
  10. VITAMIN TAB [Concomitant]
  11. METHOTREXATE [Concomitant]
  12. SULFASALAZINE [Concomitant]

REACTIONS (4)
  - ANGIOEDEMA [None]
  - HYPERSENSITIVITY [None]
  - PRURITUS [None]
  - RASH [None]
